FAERS Safety Report 8923525 (Version 1)
Quarter: 2012Q4

REPORT INFORMATION
  Report Type: Spontaneous
  Country: US (occurrence: None)
  Receive Date: 20121115
  Receipt Date: 20121115
  Transmission Date: 20130627
  Serious: No
  Sender: FDA-Public Use
  Company Number: None

PATIENT
  Age: 19 Year
  Sex: Male

DRUGS (1)
  1. SOLODYN [Suspect]
     Dates: start: 20090818, end: 20100824

REACTIONS (7)
  - Fatigue [None]
  - Nausea [None]
  - Decreased appetite [None]
  - Chromaturia [None]
  - Portal hypertension [None]
  - Hepatitis [None]
  - Hepatosplenomegaly [None]
